FAERS Safety Report 15099471 (Version 2)
Quarter: 2018Q3

REPORT INFORMATION
  Report Type: Report from Study
  Country: CO (occurrence: CO)
  Receive Date: 20180702
  Receipt Date: 20180724
  Transmission Date: 20181010
  Serious: Yes (Hospitalization)
  Sender: FDA-Public Use
  Company Number: CO-ACTELION-A-US2018-172164

PATIENT
  Age: 55 Year
  Sex: Male

DRUGS (8)
  1. MICOSONA [Concomitant]
  2. BOSENTAN. [Concomitant]
     Active Substance: BOSENTAN
  3. RIVAROXABAN [Concomitant]
     Active Substance: RIVAROXABAN
  4. CALCITRIOL. [Concomitant]
     Active Substance: CALCITRIOL
  5. SILDENAFIL. [Concomitant]
     Active Substance: SILDENAFIL
  6. IPRATROPIUM BROMIDE. [Concomitant]
     Active Substance: IPRATROPIUM BROMIDE
  7. VENTAVIS [Suspect]
     Active Substance: ILOPROST
     Indication: PULMONARY HYPERTENSION
     Dosage: 1 DF, 6ID
     Route: 055
     Dates: start: 20171018
  8. BISOPROLOL [Concomitant]
     Active Substance: BISOPROLOL

REACTIONS (5)
  - Cough [Recovering/Resolving]
  - Bronchitis [Recovering/Resolving]
  - Pleural effusion [Recovering/Resolving]
  - Pneumonia [Recovered/Resolved]
  - Chest pain [Recovering/Resolving]

NARRATIVE: CASE EVENT DATE: 20180622
